FAERS Safety Report 15364721 (Version 1)
Quarter: 2018Q3

REPORT INFORMATION
  Report Type: Report from Study
  Country: DE (occurrence: DE)
  Receive Date: 20180910
  Receipt Date: 20180910
  Transmission Date: 20181010
  Serious: Yes (Other)
  Sender: FDA-Public Use
  Company Number: DE-AMGEN-DEUNI2018105979

PATIENT
  Age: 78 Year
  Sex: Female
  Weight: 57 kg

DRUGS (9)
  1. DEXAMETHASONE. [Concomitant]
     Active Substance: DEXAMETHASONE
     Indication: PROPHYLAXIS
     Dosage: 4?8 MG, UNK
  2. IRINOTECAN [Suspect]
     Active Substance: IRINOTECAN
     Indication: COLORECTAL CANCER METASTATIC
     Dosage: 279 MG, UNK
     Route: 065
     Dates: start: 20180703
  3. ATROPIN [Concomitant]
     Active Substance: ATROPINE
     Indication: CHOLINERGIC SYNDROME
     Dosage: 0.5 MG, UNK
     Route: 058
  4. DOXYCYCLIN [Concomitant]
     Active Substance: DOXYCYCLINE
     Indication: PROPHYLAXIS
     Dosage: 100 MG, QD
     Route: 048
  5. FLUOROURACIL. [Suspect]
     Active Substance: FLUOROURACIL
     Dosage: 3722 MG, UNK
     Route: 042
     Dates: start: 20180703
  6. FOLINIC ACID [Suspect]
     Active Substance: LEUCOVORIN
     Indication: COLORECTAL CANCER METASTATIC
     Dosage: 620 MG, UNK
     Route: 065
     Dates: start: 20180703
  7. FLUOROURACIL. [Suspect]
     Active Substance: FLUOROURACIL
     Indication: COLORECTAL CANCER METASTATIC
     Dosage: 620 MG, UNK
     Route: 040
     Dates: start: 20180703
  8. PANITUMUMAB [Suspect]
     Active Substance: PANITUMUMAB
     Indication: COLORECTAL CANCER METASTATIC
     Dosage: 342 MG, UNK
     Route: 042
     Dates: start: 20180703
  9. ALOXI [Concomitant]
     Active Substance: PALONOSETRON HYDROCHLORIDE
     Indication: PROPHYLAXIS
     Dosage: 250 MUG, UNK
     Route: 042

REACTIONS (5)
  - Weight decreased [Unknown]
  - Polyneuropathy [Recovering/Resolving]
  - Ocular hyperaemia [Unknown]
  - Disorientation [Unknown]
  - Headache [Unknown]

NARRATIVE: CASE EVENT DATE: 201807
